FAERS Safety Report 24741035 (Version 4)
Quarter: 2025Q3

REPORT INFORMATION
  Report Type: Report from Study
  Country: CA (occurrence: CA)
  Receive Date: 20241217
  Receipt Date: 20250707
  Transmission Date: 20251020
  Serious: Yes (Hospitalization)
  Sender: BOEHRINGER INGELHEIM
  Company Number: CA-BoehringerIngelheim-2024-BI-050915

PATIENT
  Age: 81 Year
  Sex: Male

DRUGS (1)
  1. OFEV [Suspect]
     Active Substance: NINTEDANIB
     Indication: Idiopathic pulmonary fibrosis
     Dates: start: 20240909

REACTIONS (12)
  - Syncope [Recovering/Resolving]
  - Hypotension [Recovering/Resolving]
  - Haemoglobin decreased [Recovering/Resolving]
  - Productive cough [Not Recovered/Not Resolved]
  - Pulmonary function test abnormal [Not Recovered/Not Resolved]
  - Wheezing [Not Recovered/Not Resolved]
  - Heart rate increased [Not Recovered/Not Resolved]
  - Asthenia [Not Recovered/Not Resolved]
  - Asthenia [Recovered/Resolved]
  - Lung diffusion test decreased [Unknown]
  - Total lung capacity decreased [Unknown]
  - Restrictive pulmonary disease [Unknown]

NARRATIVE: CASE EVENT DATE: 20250605
